FAERS Safety Report 9129896 (Version 1)
Quarter: 2013Q1

REPORT INFORMATION
  Report Type: Spontaneous
  Country: GB (occurrence: GB)
  Receive Date: 20130228
  Receipt Date: 20130228
  Transmission Date: 20140127
  Serious: Yes (Other)
  Sender: FDA-Public Use
  Company Number: GB-TEVA-387037ISR

PATIENT
  Sex: Female

DRUGS (8)
  1. PREDNISOLONE [Suspect]
     Indication: LOWER RESPIRATORY TRACT INFECTION
     Dosage: 30 MILLIGRAM DAILY; 6, 5MG TABLET DAILY
     Route: 065
     Dates: start: 20120307
  2. PREDNISOLONE [Suspect]
     Dosage: 5 MILLIGRAM DAILY;
     Dates: end: 201205
  3. PREDNISOLONE [Suspect]
     Dosage: 30 MILLIGRAM DAILY;
  4. PREDNISOLONE [Suspect]
     Dosage: 15 MILLIGRAM DAILY;
  5. NIQUITIN [Concomitant]
     Dosage: 21/24 HR APPLY DAILY - NOCONIN PATCH
  6. SERETIDE [Concomitant]
     Indication: CHRONIC OBSTRUCTIVE PULMONARY DISEASE
  7. VENTOLIN [Concomitant]
     Indication: CHRONIC OBSTRUCTIVE PULMONARY DISEASE
     Dosage: INHALER
  8. CALCIUM [Concomitant]

REACTIONS (16)
  - Depression [Recovered/Resolved]
  - Glaucoma [Unknown]
  - Weight increased [Unknown]
  - Intelligence increased [Unknown]
  - Fatigue [Unknown]
  - Mood swings [Unknown]
  - Muscular weakness [Unknown]
  - Vision blurred [Recovered/Resolved]
  - Flatulence [Unknown]
  - Dizziness [Unknown]
  - Malaise [Unknown]
  - Abdominal discomfort [Unknown]
  - Gait disturbance [Unknown]
  - Energy increased [Unknown]
  - Withdrawal syndrome [Unknown]
  - Insomnia [Unknown]
